FAERS Safety Report 10694547 (Version 4)
Quarter: 2015Q2

REPORT INFORMATION
  Report Type: Report from Study
  Country: US (occurrence: US)
  Receive Date: 20150107
  Receipt Date: 20150424
  Transmission Date: 20150821
  Serious: Yes (Other)
  Sender: FDA-Public Use
  Company Number: US-BIOGENIDEC-2015BI000312

PATIENT
  Age: 51 Year
  Sex: Female

DRUGS (2)
  1. TECFIDERA [Suspect]
     Active Substance: DIMETHYL FUMARATE
     Indication: MULTIPLE SCLEROSIS
     Route: 048
     Dates: end: 20140201
  2. TECFIDERA [Suspect]
     Active Substance: DIMETHYL FUMARATE
     Indication: MULTIPLE SCLEROSIS
     Route: 048
     Dates: start: 20131226

REACTIONS (21)
  - Drug effect decreased [Unknown]
  - Photopsia [Recovered/Resolved]
  - Headache [Recovered/Resolved]
  - Flank pain [Recovered/Resolved]
  - Fatigue [Unknown]
  - Pancreatic haemorrhage [Recovered/Resolved]
  - Hyperchlorhydria [Recovered/Resolved]
  - Diplopia [Recovered/Resolved]
  - Peripheral swelling [Unknown]
  - Urinary retention [Unknown]
  - Pancreatitis [Recovered/Resolved]
  - Memory impairment [Not Recovered/Not Resolved]
  - Weight increased [Unknown]
  - Multiple sclerosis relapse [Unknown]
  - Arthralgia [Unknown]
  - Vision blurred [Unknown]
  - Blindness [Unknown]
  - Liver disorder [Recovered/Resolved]
  - Gastrointestinal pain [Recovered/Resolved]
  - Feeding disorder [Recovered/Resolved]
  - General symptom [Unknown]

NARRATIVE: CASE EVENT DATE: 20131227
